FAERS Safety Report 6732409-5 (Version None)
Quarter: 2010Q2

REPORT INFORMATION
  Report Type: 
  Country: None (occurrence: None)
  Receive Date: 20100519
  Receipt Date: 20100514
  Transmission Date: 20101027
  Serious: Yes (Hospitalization, Other)
  Sender: FDA-Public Use
  Company Number: DE-MERCK-1005DEU00041

PATIENT
  Age: 75 Year
  Sex: Male
  Weight: 85 kg

DRUGS (3)
  1. ZOCOR [Suspect]
     Route: 048
     Dates: start: 20080101, end: 20090101
  2. ENALAPRIL MALEATE [Concomitant]
     Indication: CARDIAC FAILURE
     Route: 048
  3. METOPROLOL [Concomitant]
     Indication: VENTRICULAR EXTRASYSTOLES
     Route: 048

REACTIONS (2)
  - LUMBOSACRAL PLEXUS LESION [None]
  - RHABDOMYOLYSIS [None]
